FAERS Safety Report 7933245-4 (Version None)
Quarter: 2011Q4

REPORT INFORMATION
  Report Type: 
  Country: None (occurrence: None)
  Receive Date: 20111122
  Receipt Date: 20111108
  Transmission Date: 20120403
  Serious: No
  Sender: FDA-Public Use
  Company Number: US-B.I. PHARMACEUTICALS,INC./RIDGEFIELD-2011-BP-25828BP

PATIENT
  Age: 64 Year
  Sex: Male

DRUGS (5)
  1. ASPIRIN [Concomitant]
     Dosage: 81 MG
     Route: 048
     Dates: start: 20060101
  2. PRADAXA [Suspect]
     Indication: ATRIAL FLUTTER
     Dosage: 300 MG
     Route: 048
     Dates: start: 20111001, end: 20111101
  3. NORVASC [Concomitant]
     Indication: HYPERTENSION
     Dosage: 10 MG
     Route: 048
     Dates: start: 20111001
  4. TORSAMIDE [Concomitant]
     Indication: FLUID RETENTION
     Dosage: 20 MG
     Route: 048
     Dates: start: 20070101
  5. DIOVAN [Concomitant]
     Dosage: 325 MG
     Route: 048
     Dates: start: 20060101

REACTIONS (3)
  - OESOPHAGEAL PAIN [None]
  - BLOOD BLISTER [None]
  - DYSPEPSIA [None]
